FAERS Safety Report 18245104 (Version 1)
Quarter: 2020Q3

REPORT INFORMATION
  Report Type: Other
  Country: AT (occurrence: AT)
  Receive Date: 20200908
  Receipt Date: 20200908
  Transmission Date: 20201103
  Serious: Yes (Other)
  Sender: FDA-Public Use
  Company Number: AT-ROCHE-2670190

PATIENT
  Age: 42 Year
  Sex: Female
  Weight: 69 kg

DRUGS (13)
  1. PANTOLOC [Concomitant]
     Active Substance: PANTOPRAZOLE SODIUM
     Indication: MUSCULOSKELETAL CHEST PAIN
     Dosage: ONGOING = NOT CHECKED
     Dates: start: 20190624, end: 20200615
  2. FENTANYL. [Concomitant]
     Active Substance: FENTANYL
     Indication: MUSCULOSKELETAL CHEST PAIN
     Dosage: ONGOING = NOT CHECKED
     Dates: start: 20190624, end: 20200615
  3. PREGABALIN. [Concomitant]
     Active Substance: PREGABALIN
     Indication: MUSCULOSKELETAL CHEST PAIN
     Dosage: ONGOING = NOT CHECKED
     Dates: start: 20190625, end: 20200615
  4. ZOFRAN [Concomitant]
     Active Substance: ONDANSETRON HYDROCHLORIDE
     Dosage: ONGOING = NOT CHECKED
     Dates: start: 20180722, end: 20200615
  5. TEMGESIC [Concomitant]
     Active Substance: BUPRENORPHINE HYDROCHLORIDE
     Indication: MUSCULOSKELETAL CHEST PAIN
     Dosage: ONGOING = NOT CHECKED
     Dates: start: 20190624, end: 20200615
  6. OLEOVIT?D3 [Concomitant]
     Indication: VITAMIN D DEFICIENCY
     Dosage: ONGOING = NOT CHECKED
     Dates: start: 20190312, end: 20200615
  7. EFFENTORA [Concomitant]
     Active Substance: FENTANYL CITRATE
     Indication: MUSCULOSKELETAL CHEST PAIN
     Dosage: ONGOING = NOT CHECKED
     Dates: start: 20190624, end: 20200615
  8. CAPECITABINE. [Suspect]
     Active Substance: CAPECITABINE
     Indication: BREAST CANCER
     Dosage: MOST RECENT DOSE OF CAPECITABINE WAS RECEIVED ON 17/MAR/2020.
     Route: 048
     Dates: start: 20191217
  9. TRASTUZUMAB EMTANSINE [Suspect]
     Active Substance: ADO-TRASTUZUMAB EMTANSINE
     Indication: BREAST CANCER
     Dosage: MOST RECENT DOSE OF TRASTUZUMAB EMTANSINE WAS RECEIVED ON 05/NOV/2018.
     Route: 042
     Dates: start: 20180723
  10. ZOLDEM [Concomitant]
     Active Substance: ZOLPIDEM TARTRATE
     Indication: INSOMNIA
     Dosage: ONGOING = NOT CHECKED
     Dates: start: 20180717, end: 20200615
  11. HALAVEN [Suspect]
     Active Substance: ERIBULIN MESYLATE
     Indication: BREAST CANCER
     Dosage: MOST RECENT DOSE OF ERIBULIN MESILATE WAS RECEIVED ON 13/NOV/2019.
     Route: 042
     Dates: start: 20181130
  12. DICLOBENE [Concomitant]
     Active Substance: DICLOFENAC SODIUM
     Indication: MUSCULOSKELETAL CHEST PAIN
     Dosage: ONGOING = NOT CHECKED
     Dates: start: 20190624, end: 20200615
  13. FORTECORTIN [Concomitant]
     Active Substance: DEXAMETHASONE
     Dosage: ONGOING = NOT CHECKED
     Dates: start: 20180722, end: 20200615

REACTIONS (1)
  - Pericardial effusion [Not Recovered/Not Resolved]

NARRATIVE: CASE EVENT DATE: 20200221
